FAERS Safety Report 8647009 (Version 2)
Quarter: 2012Q4

REPORT INFORMATION
  Report Type: 
  Country: GB (occurrence: GB)
  Receive Date: 20120703
  Receipt Date: 20120921
  Transmission Date: 20130627
  Serious: Yes (Disabling, Other)
  Sender: FDA-Public Use
  Company Number: PHFR2012GB003685

PATIENT
  Age: 60 Year
  Sex: Male

DRUGS (4)
  1. CLOZARIL [Suspect]
     Indication: SCHIZOPHRENIA
     Dosage: 125 mg, BID
     Route: 048
  2. PROCYCLIDINE [Concomitant]
     Dosage: 5 mg, TID
     Route: 048
  3. VALPROIC ACID [Concomitant]
     Dosage: 1000 mg, BID
     Route: 048
  4. QUETIAPINE [Concomitant]
     Dosage: 25 mg, BID
     Route: 048

REACTIONS (5)
  - Salivary hypersecretion [Not Recovered/Not Resolved]
  - Schizophrenia [Unknown]
  - Learning disability [Unknown]
  - Malaise [Unknown]
  - White blood cell count decreased [Unknown]
